FAERS Safety Report 4531563-3 (Version None)
Quarter: 2004Q4

REPORT INFORMATION
  Report Type: 
  Country: None (occurrence: None)
  Receive Date: 20041220
  Receipt Date: 20041208
  Transmission Date: 20050328
  Serious: Yes (Hospitalization)
  Sender: FDA-Public Use
  Company Number: AU-BRISTOL-MYERS SQUIBB COMPANY-12790275

PATIENT
  Age: 72 Year
  Sex: Female
  Weight: 118 kg

DRUGS (1)
  1. WARFARIN SODIUM [Suspect]
     Indication: PROPHYLAXIS
     Dates: start: 20040415

REACTIONS (2)
  - HAEMORRHOIDAL HAEMORRHAGE [None]
  - RECTAL POLYP [None]
